FAERS Safety Report 14309433 (Version 1)
Quarter: 2017Q4

REPORT INFORMATION
  Report Type: Spontaneous
  Country: GB (occurrence: GB)
  Receive Date: 20171220
  Receipt Date: 20171220
  Transmission Date: 20180321
  Serious: Yes (Death)
  Sender: FDA-Public Use
  Company Number: GB-TEVA-2017-GB-835029

PATIENT
  Age: 82 Year
  Sex: Female

DRUGS (4)
  1. GLICLAZIDE (ACTAVIS) [Suspect]
     Active Substance: GLICLAZIDE
     Indication: DIABETES MELLITUS
     Route: 065
     Dates: start: 2014
  2. PARACETAMOL [Concomitant]
     Active Substance: ACETAMINOPHEN
     Route: 065
  3. SIMVASTATIN. [Concomitant]
     Active Substance: SIMVASTATIN
     Route: 065
  4. PREDNISOLOLONE [Suspect]
     Active Substance: PREDNISOLONE
     Indication: MYALGIA
     Route: 065
     Dates: start: 2014

REACTIONS (3)
  - Death [Fatal]
  - Product packaging confusion [Unknown]
  - Intercepted product selection error [Unknown]

NARRATIVE: CASE EVENT DATE: 2016
